FAERS Safety Report 5647183-3 (Version None)
Quarter: 2008Q1

REPORT INFORMATION
  Report Type: 
  Country: None (occurrence: None)
  Receive Date: 20080228
  Receipt Date: 20080228
  Transmission Date: 20080703
  Serious: No
  Sender: FDA-Public Use
  Company Number: None

PATIENT

DRUGS (1)
  1. NAPROXEN [Suspect]
     Indication: MUSCLE STRAIN
     Dates: start: 20060415, end: 20060515

REACTIONS (2)
  - OPTIC NERVE INJURY [None]
  - OPTIC NEUROPATHY [None]
